FAERS Safety Report 18195354 (Version 5)
Quarter: 2021Q3

REPORT INFORMATION
  Report Type: Spontaneous
  Country: US (occurrence: US)
  Receive Date: 20200825
  Receipt Date: 20210917
  Transmission Date: 20211014
  Serious: Yes (Hospitalization, Other)
  Sender: FDA-Public Use
  Company Number: US-GILEAD-2020-0490990

PATIENT
  Age: 47 Year
  Sex: Female
  Weight: 53.06 kg

DRUGS (11)
  1. EMTRIVA [Concomitant]
     Active Substance: EMTRICITABINE
  2. ATRIPLA [Suspect]
     Active Substance: EFAVIRENZ\EMTRICITABINE\TENOFOVIR DISOPROXIL FUMARATE
     Dosage: UNK
     Route: 065
     Dates: start: 200805, end: 201803
  3. COMBIVIR [Concomitant]
     Active Substance: LAMIVUDINE\ZIDOVUDINE
  4. EDURANT [Concomitant]
     Active Substance: RILPIVIRINE HYDROCHLORIDE
     Dosage: UNK
     Dates: start: 2016
  5. METOPROLOL. [Concomitant]
     Active Substance: METOPROLOL
  6. TIVICAY [Concomitant]
     Active Substance: DOLUTEGRAVIR SODIUM
  7. SYMBICORT [Concomitant]
     Active Substance: BUDESONIDE\FORMOTEROL FUMARATE DIHYDRATE
  8. ATRIPLA [Suspect]
     Active Substance: EFAVIRENZ\EMTRICITABINE\TENOFOVIR DISOPROXIL FUMARATE
     Dosage: UNK
     Route: 048
     Dates: start: 2006, end: 201804
  9. SUSTIVA [Concomitant]
     Active Substance: EFAVIRENZ
  10. VIRAMUNE [Concomitant]
     Active Substance: NEVIRAPINE
  11. ATRIPLA [Suspect]
     Active Substance: EFAVIRENZ\EMTRICITABINE\TENOFOVIR DISOPROXIL FUMARATE
     Indication: HIV INFECTION
     Dosage: UNK
     Route: 048
     Dates: start: 2006, end: 2016

REACTIONS (18)
  - Multiple fractures [Unknown]
  - Gait disturbance [Not Recovered/Not Resolved]
  - Dysstasia [Not Recovered/Not Resolved]
  - Acute kidney injury [Unknown]
  - Emotional distress [Not Recovered/Not Resolved]
  - Anhedonia [Not Recovered/Not Resolved]
  - Depression [Not Recovered/Not Resolved]
  - Hip fracture [Unknown]
  - Renal impairment [Not Recovered/Not Resolved]
  - Pain [Not Recovered/Not Resolved]
  - Osteoporosis [Not Recovered/Not Resolved]
  - Fanconi syndrome acquired [Recovered/Resolved]
  - Metabolic acidosis [Recovered/Resolved]
  - Nephrogenic anaemia [Not Recovered/Not Resolved]
  - Anxiety [Not Recovered/Not Resolved]
  - Foot fracture [Not Recovered/Not Resolved]
  - Chronic kidney disease [Not Recovered/Not Resolved]
  - Bone density decreased [Unknown]

NARRATIVE: CASE EVENT DATE: 2008
